FAERS Safety Report 6916801-1 (Version None)
Quarter: 2010Q3

REPORT INFORMATION
  Report Type: 
  Country: None (occurrence: None)
  Receive Date: 20100810
  Receipt Date: 20100804
  Transmission Date: 20110219
  Serious: Yes (Hospitalization)
  Sender: FDA-Public Use
  Company Number: US-SHIRE-SPV1-2010-01396

PATIENT
  Sex: Female

DRUGS (4)
  1. MAS (MIXED AMPHETAMINE SALTS) [Suspect]
     Indication: ATTENTION DEFICIT/HYPERACTIVITY DISORDER
     Dosage: 30 MG, 1X/DAY:QD
     Route: 048
     Dates: start: 20090601
  2. MAS (MIXED AMPHETAMINE SALTS) [Suspect]
     Dosage: 30 MG, TWO CAPSULES DAILY
  3. OTC SLEEP MEDICATIONS [Suspect]
     Indication: INSOMNIA
  4. ADDERALL XR 10 [Concomitant]
     Indication: ATTENTION DEFICIT/HYPERACTIVITY DISORDER
     Dates: start: 20050101, end: 20090601

REACTIONS (2)
  - DRUG INEFFECTIVE [None]
  - INTENTIONAL OVERDOSE [None]
